FAERS Safety Report 23295708 (Version 1)
Quarter: 2023Q4

REPORT INFORMATION
  Report Type: Other
  Country: SE (occurrence: SE)
  Receive Date: 20231214
  Receipt Date: 20231214
  Transmission Date: 20240110
  Serious: Yes (Life-Threatening, Other)
  Sender: FDA-Public Use
  Company Number: SE-DENTSPLY-2023SCDP000410

PATIENT
  Age: 38 Year
  Sex: Male

DRUGS (2)
  1. EPINEPHRINE BITARTRATE\LIDOCAINE HYDROCHLORIDE [Suspect]
     Active Substance: EPINEPHRINE BITARTRATE\LIDOCAINE HYDROCHLORIDE
     Indication: Local anaesthesia
     Dosage: 1.8 MILLILITER OF 20 MG/ML + 12.5 MCGS/ML XYLOCAIN DENTAL ADRENALIN INJECTION FLUID, SOLUTION/SOLUTI
     Dates: start: 20231121
  2. ARTICAINE HYDROCHLORIDE AND EPINEPHRINE [Suspect]
     Active Substance: ARTICAINE HYDROCHLORIDE\EPINEPHRINE BITARTRATE
     Indication: Local anaesthesia
     Dosage: 0.40 MILLILITER (ABOUT 1/5 OF A 1.7- ML AMPOULE) OF 40 MG/ML + 10 MCGS/ML SEPTOCAINE FORTE
     Dates: start: 20231121

REACTIONS (6)
  - Presyncope [Recovered/Resolved]
  - Gaze palsy [Recovered/Resolved]
  - Toxicity to various agents [Recovered/Resolved]
  - Nausea [Recovered/Resolved]
  - Pallor [Recovered/Resolved]
  - Seizure [Recovered/Resolved]

NARRATIVE: CASE EVENT DATE: 20231121
